FAERS Safety Report 5812838-4 (Version None)
Quarter: 2008Q3

REPORT INFORMATION
  Report Type: 
  Country: None (occurrence: None)
  Receive Date: 20080717
  Receipt Date: 20080709
  Transmission Date: 20090109
  Serious: Yes (Hospitalization, Other)
  Sender: FDA-Public Use
  Company Number: SI-NOVOPROD-275644

PATIENT
  Age: 72 Year
  Sex: Male
  Weight: 89 kg

DRUGS (13)
  1. NOVOLOG MIX 70/30 [Suspect]
     Indication: TYPE 2 DIABETES MELLITUS
     Dosage: MORNING DOSE 20-24 IU, EVENING DOSE 10 IU
     Route: 058
     Dates: start: 20070122, end: 20070425
  2. NOVOLOG MIX 70/30 [Suspect]
     Dosage: MORNING DOSE 20-24 IU, EVENING DOSE 14-16 IU
     Route: 058
     Dates: start: 20070425, end: 20070901
  3. NOVOLOG MIX 70/30 [Suspect]
     Dosage: 48 IU, QD
     Route: 058
     Dates: start: 20070901, end: 20080101
  4. HUMALOG [Suspect]
     Indication: TYPE 2 DIABETES MELLITUS
     Dosage: 54 IU, QD
     Route: 058
     Dates: start: 20080101, end: 20080220
  5. HUMALOG [Suspect]
  6. MIXTARD 30 FLEXPEN [Suspect]
     Indication: TYPE 2 DIABETES MELLITUS
     Dosage: MORNING DOSE 32-34 IU, EVENING DOSE 30 IU
     Route: 058
     Dates: start: 20080220, end: 20080302
  7. NOVORAPID FLEXPEN [Suspect]
     Indication: TYPE 2 DIABETES MELLITUS
     Dosage: 4-6 IU
     Dates: start: 20070404, end: 20070920
  8. NOVONORM [Suspect]
     Indication: TYPE 2 DIABETES MELLITUS
     Dosage: 2 MG, QD, BEFORE MEAL
     Route: 048
     Dates: start: 20070920
  9. NOVONORM [Suspect]
     Dosage: 2 MG, TID, AFTER MAIN MEALS
  10. DIAPREL MR [Concomitant]
  11. AGLURAB [Concomitant]
     Dosage: 2 TAB, QD
     Dates: end: 20070101
  12. AGLURAB [Concomitant]
     Dosage: 3 TAB, QD
  13. GLUCOVANCE                         /01503701/ [Concomitant]
     Dosage: 4 TAB, QD

REACTIONS (4)
  - ANTI-INSULIN ANTIBODY [None]
  - DIABETES MELLITUS INADEQUATE CONTROL [None]
  - HYPERSENSITIVITY [None]
  - INJECTION SITE URTICARIA [None]
